FAERS Safety Report 23353010 (Version 1)
Quarter: 2023Q4

REPORT INFORMATION
  Report Type: Spontaneous
  Country: GB (occurrence: GB)
  Receive Date: 20231230
  Receipt Date: 20231230
  Transmission Date: 20240109
  Serious: Yes (Other)
  Sender: FDA-Public Use
  Company Number: None

PATIENT
  Sex: Male
  Weight: 102 kg

DRUGS (1)
  1. SOLIFENACIN SUCCINATE [Suspect]
     Active Substance: SOLIFENACIN SUCCINATE
     Indication: Adverse drug reaction
     Dosage: 10MG TWICE A DAY
     Dates: start: 2023

REACTIONS (5)
  - Dry mouth [Recovered/Resolved]
  - Blood glucose increased [Recovering/Resolving]
  - Visual impairment [Recovering/Resolving]
  - Thirst [Recovered/Resolved]
  - Polydipsia [Recovered/Resolved]

NARRATIVE: CASE EVENT DATE: 20230901
